FAERS Safety Report 6254371-4 (Version None)
Quarter: 2009Q3

REPORT INFORMATION
  Report Type: 
  Country: None (occurrence: None)
  Receive Date: 20090702
  Receipt Date: 20090622
  Transmission Date: 20100115
  Serious: Yes (Hospitalization, Disabling, Other)
  Sender: FDA-Public Use
  Company Number: US-ROCHE-509519

PATIENT
  Sex: Female
  Weight: 78 kg

DRUGS (3)
  1. ACCUTANE [Suspect]
     Indication: ACNE
     Route: 065
     Dates: start: 19990307, end: 19990413
  2. DOXYCYCLINE [Concomitant]
     Dates: start: 19990302
  3. TRIMETHOPRIM + SULFAMETHOXAZOLE [Concomitant]
     Dosage: REPORTED AS TRIMETHOPRIM/SULFAMETHOXAZOLE.
     Dates: start: 19990302

REACTIONS (42)
  - ABDOMINAL PAIN UPPER [None]
  - ANAEMIA [None]
  - ANXIETY [None]
  - ARTHRALGIA [None]
  - ASTHENIA [None]
  - CARDIAC FAILURE [None]
  - CARPAL TUNNEL SYNDROME [None]
  - CHOLECYSTITIS [None]
  - CHOLELITHIASIS [None]
  - CHRONIC FATIGUE SYNDROME [None]
  - COLITIS [None]
  - COLITIS ULCERATIVE [None]
  - CROHN'S DISEASE [None]
  - DECREASED APPETITE [None]
  - DEPRESSION [None]
  - FIBROMYALGIA [None]
  - GASTROINTESTINAL DISORDER [None]
  - GASTROINTESTINAL HAEMORRHAGE [None]
  - HAEMORRHOIDAL HAEMORRHAGE [None]
  - HAEMORRHOIDS [None]
  - HEPATIC STEATOSIS [None]
  - HYPERSENSITIVITY [None]
  - ILEITIS [None]
  - INFLAMMATORY BOWEL DISEASE [None]
  - INFLUENZA LIKE ILLNESS [None]
  - IRRITABLE BOWEL SYNDROME [None]
  - LARGE INTESTINE PERFORATION [None]
  - MAJOR DEPRESSION [None]
  - NECROTISING COLITIS [None]
  - OSTEOPENIA [None]
  - PARANOIA [None]
  - POLYARTHRITIS [None]
  - POLYP [None]
  - PSEUDOPOLYP [None]
  - PYREXIA [None]
  - RECTAL PROLAPSE [None]
  - RHEUMATOID ARTHRITIS [None]
  - SEPSIS [None]
  - SUICIDAL IDEATION [None]
  - SUICIDE ATTEMPT [None]
  - URINARY TRACT INFECTION [None]
  - WEIGHT DECREASED [None]
